FAERS Safety Report 15855676 (Version 3)
Quarter: 2019Q2

REPORT INFORMATION
  Report Type: Spontaneous
  Country: US (occurrence: US)
  Receive Date: 20190122
  Receipt Date: 20190605
  Transmission Date: 20190711
  Serious: No
  Sender: FDA-Public Use
  Company Number: US-ACTELION-A-US2019-184685

PATIENT
  Sex: Female
  Weight: 99.77 kg

DRUGS (2)
  1. VELETRI [Suspect]
     Active Substance: EPOPROSTENOL
     Indication: PULMONARY HYPERTENSION
     Dosage: 22 NG/KG, PER MIN
     Route: 042
  2. OPSUMIT [Concomitant]
     Active Substance: MACITENTAN

REACTIONS (20)
  - Product preparation error [Unknown]
  - Pain in extremity [Unknown]
  - Rhinorrhoea [Unknown]
  - Palpitations [Not Recovered/Not Resolved]
  - Rash [Not Recovered/Not Resolved]
  - Diarrhoea [Not Recovered/Not Resolved]
  - Back pain [Unknown]
  - Pulmonary arterial hypertension [Recovering/Resolving]
  - Therapy cessation [Unknown]
  - Headache [Unknown]
  - Nasal congestion [Unknown]
  - Nasopharyngitis [Unknown]
  - Head discomfort [Not Recovered/Not Resolved]
  - Nausea [Unknown]
  - Dyspnoea exertional [Not Recovered/Not Resolved]
  - Fatigue [Not Recovered/Not Resolved]
  - Poor quality sleep [Unknown]
  - Incorrect drug administration rate [Unknown]
  - Neuropathy peripheral [Not Recovered/Not Resolved]
  - Feeling abnormal [Unknown]
